FAERS Safety Report 4851219-7 (Version None)
Quarter: 2005Q4

REPORT INFORMATION
  Report Type: 
  Country: None (occurrence: None)
  Receive Date: 20051208
  Receipt Date: 20051123
  Transmission Date: 20060501
  Serious: Yes (Hospitalization, Other)
  Sender: FDA-Public Use
  Company Number: AND_0252_2005

PATIENT
  Age: 71 Year
  Sex: Male

DRUGS (1)
  1. ALTOPREV [Suspect]
     Dosage: 60 MG

REACTIONS (2)
  - COLON CANCER [None]
  - RHABDOMYOLYSIS [None]
